FAERS Safety Report 7028423-5 (Version None)
Quarter: 2010Q4

REPORT INFORMATION
  Report Type: 
  Country: None (occurrence: None)
  Receive Date: 20101005
  Receipt Date: 20100930
  Transmission Date: 20110411
  Serious: Yes (Hospitalization)
  Sender: FDA-Public Use
  Company Number: FR-ROCHE-730421

PATIENT
  Sex: Female

DRUGS (10)
  1. ROCEPHIN [Suspect]
     Indication: PRODUCT USED FOR UNKNOWN INDICATION
     Route: 042
     Dates: start: 20091223, end: 20100101
  2. COUMADIN [Suspect]
     Indication: PRODUCT USED FOR UNKNOWN INDICATION
     Route: 048
  3. LOVENOX [Suspect]
     Indication: PRODUCT USED FOR UNKNOWN INDICATION
     Route: 058
     Dates: start: 20091224, end: 20100107
  4. OFLOCET [Suspect]
     Indication: PRODUCT USED FOR UNKNOWN INDICATION
     Route: 048
     Dates: start: 20091223, end: 20091228
  5. TAREG [Concomitant]
     Route: 048
  6. FUROSEMIDE [Concomitant]
     Route: 048
  7. DIFFU K [Concomitant]
     Route: 048
  8. LEVOTHYROXINE SODIUM [Concomitant]
     Dosage: FORM: DIVISIBLE TABLET
     Route: 048
  9. NEXIUM [Concomitant]
     Dosage: FORM: GASTRORESISITANT TABLET
     Route: 048
  10. SERETIDE [Concomitant]
     Dosage: DRUG: SERETIDE 500
     Route: 055

REACTIONS (1)
  - HAEMATOMA [None]
